FAERS Safety Report 26048560 (Version 1)
Quarter: 2025Q4

REPORT INFORMATION
  Report Type: Spontaneous
  Country: EU (occurrence: EU)
  Receive Date: 20251114
  Receipt Date: 20251114
  Transmission Date: 20260118
  Serious: Yes (Other)
  Sender: SANDOZ
  Company Number: EU-EMB-M202407097-1

PATIENT
  Sex: Female

DRUGS (9)
  1. HYDROCORTISONE BUTYRATE [Suspect]
     Active Substance: HYDROCORTISONE BUTYRATE
     Indication: Morphoea
     Dosage: UNK, QD
     Route: 064
     Dates: start: 202310, end: 202311
  2. TRIAMCINOLONE ACETONIDE [Suspect]
     Active Substance: TRIAMCINOLONE ACETONIDE
     Indication: Morphoea
     Dosage: FOR THREE WEEKS
     Route: 064
  3. AMPICILLIN [Concomitant]
     Active Substance: AMPICILLIN
     Indication: Premature rupture of membranes
     Dosage: 1000 MG, QD
     Route: 064
     Dates: start: 20231116, end: 20231116
  4. AMPICILLIN [Concomitant]
     Active Substance: AMPICILLIN
     Dosage: 2000 MG, QD
     Route: 064
     Dates: start: 202311, end: 202311
  5. MISOPROSTOL [Concomitant]
     Active Substance: MISOPROSTOL
     Indication: Labour induction
     Dosage: 25 UG, QD
     Route: 064
     Dates: start: 202311, end: 202311
  6. ACETAMINOPHEN\BUTYLSCOPOLAMINE BROMIDE [Concomitant]
     Active Substance: ACETAMINOPHEN\BUTYLSCOPOLAMINE BROMIDE
     Indication: Labour pain
     Dosage: 10 MG, QD
     Route: 064
     Dates: start: 202311, end: 202311
  7. ACETAMINOPHEN\BUTYLSCOPOLAMINE BROMIDE [Concomitant]
     Active Substance: ACETAMINOPHEN\BUTYLSCOPOLAMINE BROMIDE
     Dosage: 800 MG, QD
     Route: 065
     Dates: start: 202311, end: 202311
  8. OXYTOCIN [Concomitant]
     Active Substance: OXYTOCIN
     Indication: Obstructed labour
     Dosage: UNK, QD
     Route: 064
     Dates: start: 202311, end: 202311
  9. Spascupreel [Concomitant]
     Indication: Labour pain
     Dosage: UNK, QD
     Route: 064
     Dates: start: 202311, end: 202311

REACTIONS (2)
  - Small for dates baby [Recovered/Resolved]
  - Foetal exposure during pregnancy [Unknown]

NARRATIVE: CASE EVENT DATE: 20231101
